FAERS Safety Report 7297142-2 (Version None)
Quarter: 2011Q1

REPORT INFORMATION
  Report Type: 
  Country: None (occurrence: None)
  Receive Date: 20110216
  Receipt Date: 20110214
  Transmission Date: 20110831
  Serious: No
  Sender: FDA-Public Use
  Company Number: US-PFIZER INC-2011032870

PATIENT
  Sex: Female
  Weight: 45.351 kg

DRUGS (2)
  1. XALATAN [Suspect]
     Indication: GLAUCOMA
     Dosage: 1 GTT, 1X/DAY
     Route: 047
     Dates: start: 20090101, end: 20100701
  2. KLONOPIN [Concomitant]
     Dosage: 0.5 MG, 1X/DAY
     Route: 048

REACTIONS (1)
  - RASH [None]
